FAERS Safety Report 8927899 (Version 1)
Quarter: 2012Q4

REPORT INFORMATION
  Report Type: 
  Country: US (occurrence: US)
  Receive Date: 20121127
  Receipt Date: 20121127
  Transmission Date: 20130627
  Serious: Yes (Hospitalization)
  Sender: FDA-Public Use
  Company Number: US-009507513-1208USA009949

PATIENT
  Sex: Female

DRUGS (6)
  1. SAPHRIS [Suspect]
     Dosage: 5 mg, bid
     Route: 060
     Dates: start: 201207
  2. SEROQUEL XL [Suspect]
  3. ESTROGENS (UNSPECIFIED) [Concomitant]
  4. HYDROCODONE [Concomitant]
  5. XANAX TABLETS [Concomitant]
  6. LAMICTAL [Concomitant]
     Dosage: UNK

REACTIONS (6)
  - Depression [Not Recovered/Not Resolved]
  - Insomnia [Not Recovered/Not Resolved]
  - Weight increased [Not Recovered/Not Resolved]
  - Skin wrinkling [Not Recovered/Not Resolved]
  - Drug dose omission [Unknown]
  - Product quality issue [Unknown]
